FAERS Safety Report 15501624 (Version 2)
Quarter: 2018Q4

REPORT INFORMATION
  Report Type: Spontaneous
  Country: US (occurrence: US)
  Receive Date: 20181015
  Receipt Date: 20181015
  Transmission Date: 20190205
  Serious: No
  Sender: FDA-Public Use
  Company Number: US-AMGEN-USASP2017168894

PATIENT
  Age: 28 Year
  Sex: Male

DRUGS (7)
  1. EPOGEN [Suspect]
     Active Substance: ERYTHROPOIETIN
     Indication: NEPHROGENIC ANAEMIA
     Dosage: UNK
     Route: 065
  2. ROCALTROL [Concomitant]
     Active Substance: CALCITRIOL
     Dosage: 0.5 UNK, QD
  3. ARANESP [Suspect]
     Active Substance: DARBEPOETIN ALFA
     Dosage: 200 MCG, Q2WK
     Route: 065
     Dates: start: 201705, end: 201708
  4. ARANESP [Suspect]
     Active Substance: DARBEPOETIN ALFA
     Dosage: 200 MCG, QWK
     Route: 065
     Dates: start: 20170823
  5. VITAMIN D3 [Concomitant]
     Active Substance: CHOLECALCIFEROL
     Dosage: UNK
  6. ARANESP [Suspect]
     Active Substance: DARBEPOETIN ALFA
     Indication: NEPHROGENIC ANAEMIA
     Dosage: 200 MCG, QWK
     Route: 065
     Dates: start: 201406, end: 20170517
  7. TUMS [Concomitant]
     Active Substance: CALCIUM CARBONATE
     Dosage: UNK

REACTIONS (2)
  - Therapy non-responder [Not Recovered/Not Resolved]
  - Therapeutic response unexpected [Unknown]
